FAERS Safety Report 14132406 (Version 2)
Quarter: 2017Q4

REPORT INFORMATION
  Report Type: Spontaneous
  Country: US (occurrence: US)
  Receive Date: 20171026
  Receipt Date: 20171027
  Transmission Date: 20180321
  Serious: Yes (Other)
  Sender: FDA-Public Use
  Company Number: US-SA-2017SA205895

PATIENT
  Sex: Female

DRUGS (2)
  1. HEAD AND SHOULDERS [Concomitant]
     Active Substance: PYRITHIONE ZINC
     Indication: DANDRUFF
     Route: 003
  2. SELSUN BLUE [Suspect]
     Active Substance: SELENIUM SULFIDE
     Indication: DANDRUFF
     Route: 003
     Dates: start: 2017, end: 2017

REACTIONS (2)
  - Application site rash [Recovering/Resolving]
  - Application site alopecia [Recovered/Resolved]

NARRATIVE: CASE EVENT DATE: 2017
